FAERS Safety Report 24789275 (Version 1)
Quarter: 2024Q4

REPORT INFORMATION
  Report Type: Spontaneous
  Country: CA (occurrence: CA)
  Receive Date: 20241230
  Receipt Date: 20241230
  Transmission Date: 20250114
  Serious: Yes (Other)
  Sender: MYLAN
  Company Number: CA-MYLANLABS-2024M1114655

PATIENT
  Age: 32 Year
  Sex: Female

DRUGS (2)
  1. SERTRALINE [Suspect]
     Active Substance: SERTRALINE HYDROCHLORIDE
     Indication: Anxiety
     Dosage: 1 DOSAGE FORM, QD (1 EVERY 1 DAYS)
     Route: 048
  2. LORAZEPAM [Concomitant]
     Active Substance: LORAZEPAM
     Dosage: UNK
     Route: 065

REACTIONS (6)
  - Gastrointestinal disorder [Unknown]
  - Panic attack [Unknown]
  - Anxiety [Unknown]
  - Diarrhoea [Unknown]
  - Dry mouth [Unknown]
  - Serotonin syndrome [Unknown]
